FAERS Safety Report 6876814-5 (Version None)
Quarter: 2010Q3

REPORT INFORMATION
  Report Type: 
  Country: None (occurrence: None)
  Receive Date: 20100727
  Receipt Date: 20100722
  Transmission Date: 20110219
  Serious: Yes (Other)
  Sender: FDA-Public Use
  Company Number: SE-ROCHE-711839

PATIENT
  Age: 12 Year
  Sex: Male

DRUGS (4)
  1. CLONAZEPAM [Suspect]
     Indication: NEUROSIS
     Dosage: DOSE: 5 DFT (1-4 TABLET), FREQUENCY: DAILY.
     Route: 048
     Dates: start: 20100326, end: 20100331
  2. SERTRALIN [Concomitant]
     Route: 065
  3. SERTRALIN [Concomitant]
     Dosage: DOSE: 100 MG, FREQUENCY: UNKNOWN.
     Route: 065
  4. SERTRALIN [Concomitant]
     Dosage: DOSE: 150 MG.
     Route: 065

REACTIONS (2)
  - CONFUSIONAL STATE [None]
  - PERSONALITY DISORDER [None]
